FAERS Safety Report 18817719 (Version 2)
Quarter: 2021Q2

REPORT INFORMATION
  Report Type: Spontaneous
  Country: US (occurrence: US)
  Receive Date: 20210201
  Receipt Date: 20210407
  Transmission Date: 20210717
  Serious: No
  Sender: FDA-Public Use
  Company Number: US-MYLANLABS-2021M1005674

PATIENT
  Sex: Female
  Weight: 12 kg

DRUGS (1)
  1. EPINEPHRINE INJECTION USP AUTO?INJECTOR [Suspect]
     Active Substance: EPINEPHRINE
     Indication: DRUG HYPERSENSITIVITY
     Dosage: 0.15 MILLIGRAM, AS NEEDED, HAS NEVER NEEDED TO USE IT
     Route: 058
     Dates: start: 202002

REACTIONS (1)
  - Product quality issue [None]
